FAERS Safety Report 5774747-9 (Version None)
Quarter: 2008Q2

REPORT INFORMATION
  Report Type: 
  Country: None (occurrence: None)
  Receive Date: 20080617
  Receipt Date: 20080609
  Transmission Date: 20081010
  Serious: Yes (Hospitalization)
  Sender: FDA-Public Use
  Company Number: FR-WYE-G01664708

PATIENT
  Sex: Female

DRUGS (3)
  1. ADVIL [Suspect]
     Indication: PYREXIA
     Dosage: UNKNOWN
     Route: 048
     Dates: start: 20080606, end: 20080606
  2. ADVIL [Suspect]
     Indication: CHILLS
  3. CELESTONE [Suspect]
     Indication: HAND-FOOT-AND-MOUTH DISEASE
     Dosage: UNKNOWN
     Route: 048
     Dates: start: 20080604, end: 20080601

REACTIONS (1)
  - ARTHRITIS BACTERIAL [None]
